FAERS Safety Report 4675994-X (Version None)
Quarter: 2005Q2

REPORT INFORMATION
  Report Type: 
  Country: None (occurrence: None)
  Receive Date: 20050527
  Receipt Date: 20050422
  Transmission Date: 20051028
  Serious: No
  Sender: FDA-Public Use
  Company Number: US-GLAXOSMITHKLINE-A0555398A

PATIENT
  Age: 61 Year
  Sex: Female
  Weight: 69.5 kg

DRUGS (5)
  1. WELLBUTRIN XL [Suspect]
     Dosage: 150MG PER DAY
     Route: 048
  2. LISINOPRIL [Concomitant]
     Indication: HYPERTENSION
     Dosage: 40MG PER DAY
     Route: 048
     Dates: start: 20010101
  3. ATENOLOL [Concomitant]
     Indication: HYPERTENSION
     Route: 048
     Dates: start: 20010101
  4. LOVASTATIN [Concomitant]
     Route: 048
     Dates: start: 19920101
  5. TETRACYCLINE [Concomitant]

REACTIONS (1)
  - URTICARIA [None]
